FAERS Safety Report 20792006 (Version 1)
Quarter: 2022Q2

REPORT INFORMATION
  Report Type: Spontaneous
  Country: US (occurrence: None)
  Receive Date: 20220505
  Receipt Date: 20220505
  Transmission Date: 20220720
  Serious: No
  Sender: FDA-Public Use
  Company Number: None

PATIENT
  Sex: Female

DRUGS (2)
  1. LENALIDOMIDE [Suspect]
     Active Substance: LENALIDOMIDE
     Indication: Plasma cell myeloma
     Dosage: 25MG DAILY ORAL
     Route: 048
     Dates: start: 20220405
  2. VELCADE [Concomitant]
     Active Substance: BORTEZOMIB

REACTIONS (3)
  - Abdominal distension [None]
  - Condition aggravated [None]
  - Gastrointestinal pain [None]
